FAERS Safety Report 4742431-6 (Version None)
Quarter: 2005Q3

REPORT INFORMATION
  Report Type: 
  Country: None (occurrence: None)
  Receive Date: 20050808
  Receipt Date: 20050725
  Transmission Date: 20060218
  Serious: Yes (Other)
  Sender: FDA-Public Use
  Company Number: 2005106418

PATIENT
  Sex: Female

DRUGS (2)
  1. ZYRTEC [Suspect]
     Indication: ILL-DEFINED DISORDER
     Dates: start: 20040101
  2. NEURONTIN [Suspect]
     Indication: NERVE INJURY
     Dates: start: 20050101

REACTIONS (3)
  - GLOSSODYNIA [None]
  - NERVE INJURY [None]
  - SWOLLEN TONGUE [None]
